FAERS Safety Report 7315796-9 (Version None)
Quarter: 2011Q1

REPORT INFORMATION
  Report Type: 
  Country: None (occurrence: None)
  Receive Date: 20110225
  Receipt Date: 20110215
  Transmission Date: 20110831
  Serious: Yes (Hospitalization, Other)
  Sender: FDA-Public Use
  Company Number: US-MERCK-0908USA05130

PATIENT
  Age: 47 Year
  Sex: Female
  Weight: 80 kg

DRUGS (11)
  1. FOSAMAX [Suspect]
     Indication: OSTEOPOROSIS
     Route: 048
     Dates: start: 19990101, end: 20080601
  2. CALCIUM (UNSPECIFIED) [Concomitant]
     Indication: OSTEOPOROSIS
     Route: 048
  3. FOSAMAX [Suspect]
     Route: 048
     Dates: start: 20040101, end: 20060101
  4. VITAMIN D (UNSPECIFIED) [Concomitant]
     Indication: OSTEOPOROSIS
     Route: 065
  5. CENTRUM [Concomitant]
     Route: 065
  6. FOSAMAX [Suspect]
     Indication: STRESS FRACTURE
     Route: 048
     Dates: start: 19990101, end: 20080601
  7. FOSAMAX [Suspect]
     Route: 048
     Dates: start: 20060601, end: 20070901
  8. FOSAMAX [Suspect]
     Route: 048
     Dates: start: 20040101, end: 20060101
  9. FOSAMAX [Suspect]
     Route: 048
     Dates: start: 20060601, end: 20070901
  10. FOSAMAX [Suspect]
     Route: 048
     Dates: start: 20000101
  11. FOSAMAX [Suspect]
     Route: 048
     Dates: start: 20000101

REACTIONS (54)
  - ADVERSE DRUG REACTION [None]
  - ABDOMINAL DISCOMFORT [None]
  - WEIGHT INCREASED [None]
  - PRURITUS [None]
  - IRON DEFICIENCY [None]
  - ABDOMINAL PAIN LOWER [None]
  - HYPERTENSION [None]
  - HEPATIC STEATOSIS [None]
  - PHARYNGITIS [None]
  - VITAMIN D DEFICIENCY [None]
  - PAIN IN EXTREMITY [None]
  - SKELETAL INJURY [None]
  - MENISCUS LESION [None]
  - LOW TURNOVER OSTEOPATHY [None]
  - HYPERCALCIURIA [None]
  - ALLERGY TO ANIMAL [None]
  - OSTEONECROSIS [None]
  - HYPOAESTHESIA [None]
  - TENDONITIS [None]
  - STRESS FRACTURE [None]
  - IMPAIRED GASTRIC EMPTYING [None]
  - FEMUR FRACTURE [None]
  - TIBIA FRACTURE [None]
  - HEPATIC ENZYME INCREASED [None]
  - COUGH [None]
  - ARTHRALGIA [None]
  - SYNOVITIS [None]
  - AXILLARY MASS [None]
  - GASTROOESOPHAGEAL REFLUX DISEASE [None]
  - DYSTHYMIC DISORDER [None]
  - POLYDIPSIA [None]
  - PNEUMONIA [None]
  - OVARIAN CYST [None]
  - RIB FRACTURE [None]
  - RADICULOPATHY [None]
  - BLOOD GLUCOSE INCREASED [None]
  - FALL [None]
  - EXOSTOSIS [None]
  - BLOOD CHOLESTEROL INCREASED [None]
  - BREAST DISCHARGE [None]
  - HYPERKERATOSIS [None]
  - CELLULITIS [None]
  - ANAL CANCER [None]
  - VISUAL IMPAIRMENT [None]
  - BURSITIS [None]
  - FATIGUE [None]
  - VISION BLURRED [None]
  - BRONCHOSPASM [None]
  - SYNOVIAL CYST [None]
  - ARTHRITIS [None]
  - CHEST PAIN [None]
  - ECZEMA [None]
  - BACK PAIN [None]
  - MENOPAUSE [None]
